FAERS Safety Report 10657501 (Version 3)
Quarter: 2015Q2

REPORT INFORMATION
  Report Type: Spontaneous
  Country: US (occurrence: None)
  Receive Date: 20141215
  Receipt Date: 20150518
  Transmission Date: 20150821
  Serious: Yes (Life-Threatening, Hospitalization)
  Sender: FDA-Public Use
  Company Number: US-MDCO-14-00346

PATIENT
  Age: 85 Year
  Sex: Female
  Weight: 83.91 kg

DRUGS (1)
  1. ANGIOMAX [Suspect]
     Active Substance: BIVALIRUDIN
     Indication: ANGIOPLASTY
     Dosage: WEIGHT BASED, BOLUS
     Dates: start: 20140826, end: 20140826

REACTIONS (6)
  - Brain oedema [None]
  - Cerebral infarction [None]
  - Headache [None]
  - Confusional state [None]
  - Ischaemic cerebral infarction [None]
  - Procedural complication [None]

NARRATIVE: CASE EVENT DATE: 20140826
